FAERS Safety Report 9170701 (Version 2)
Quarter: 2013Q4

REPORT INFORMATION
  Report Type: Spontaneous
  Country: US (occurrence: None)
  Receive Date: 20130312
  Receipt Date: 20131205
  Transmission Date: 20140711
  Serious: Yes (Other)
  Sender: FDA-Public Use
  Company Number: ADR-2013-00385

PATIENT
  Sex: Female

DRUGS (2)
  1. BACLOFEN [Suspect]
     Indication: PAIN
     Dosage: 200.24 MCG/DAY
  2. FENTANYL [Suspect]
     Dosage: 75.09 MCG/DAY

REACTIONS (10)
  - Post-traumatic stress disorder [None]
  - Adhesion [None]
  - Anger [None]
  - Screaming [None]
  - Malaise [None]
  - Memory impairment [None]
  - Fall [None]
  - Asthenia [None]
  - Medical device complication [None]
  - Inadequate analgesia [None]
